FAERS Safety Report 24899268 (Version 1)
Quarter: 2025Q1

REPORT INFORMATION
  Report Type: Spontaneous
  Country: FR (occurrence: FR)
  Receive Date: 20250129
  Receipt Date: 20250129
  Transmission Date: 20250409
  Serious: Yes (Life-Threatening, Other)
  Sender: CHEPLAPHARM
  Company Number: None

PATIENT
  Age: 55 Year
  Sex: Male
  Weight: 90 kg

DRUGS (15)
  1. CLONAZEPAM [Suspect]
     Active Substance: CLONAZEPAM
     Indication: Multiple system atrophy
     Dosage: 2.5 MG/ML; AT BEDTIME;ORAL SOLUTION IN DROPS?DAILY DOSE: 15 DROP
     Route: 048
  2. AKINETON [Suspect]
     Active Substance: BIPERIDEN HYDROCHLORIDE
     Indication: Multiple system atrophy
     Route: 048
  3. ALFUZOSIN HYDROCHLORIDE [Suspect]
     Active Substance: ALFUZOSIN HYDROCHLORIDE
     Indication: Benign prostatic hyperplasia
     Dosage: 1 TABLET IN THE EVENING?DAILY DOSE: 10 MILLIGRAM
     Route: 048
  4. ALPRAZOLAM [Suspect]
     Active Substance: ALPRAZOLAM
     Indication: Depression
     Dosage: 1 TABLET AT BEDTIME?DAILY DOSE: 0.5 MILLIGRAM
     Route: 048
     Dates: start: 2023
  5. BACLOFEN [Suspect]
     Active Substance: BACLOFEN
     Indication: Multiple system atrophy
     Route: 048
  6. DOLIPRANE [Suspect]
     Active Substance: ACETAMINOPHEN
     Indication: Pain
     Route: 048
  7. DULOXETINE HYDROCHLORIDE [Suspect]
     Active Substance: DULOXETINE HYDROCHLORIDE
     Indication: Depression
     Route: 048
     Dates: start: 2023
  8. ESOMEPRAZOLE [Suspect]
     Active Substance: ESOMEPRAZOLE
     Indication: Product used for unknown indication
     Route: 048
  9. HYDROCHLOROTHIAZIDE\TELMISARTAN [Suspect]
     Active Substance: HYDROCHLOROTHIAZIDE\TELMISARTAN
     Indication: Hypertension
     Dosage: UNK/80MG/25MG?DAILY DOSE: 1 DOSAGE FORM
     Route: 048
  10. MIRTAZAPINE [Suspect]
     Active Substance: MIRTAZAPINE
     Indication: Depression
     Dosage: 1 TABLET AT BEDTIME?DAILY DOSE: 15 MILLIGRAM
     Route: 048
     Dates: start: 2023
  11. MIRTAZAPINE [Suspect]
     Active Substance: MIRTAZAPINE
     Indication: Depression
     Dosage: DAILY DOSE: 30 MILLIGRAM
     Route: 048
  12. SINEMET [Suspect]
     Active Substance: CARBIDOPA\LEVODOPA
     Indication: Multiple system atrophy
     Dosage: 100MG/10ML; SCORED TABLET ; 2 TABLETS MORNING, NOON, AFTERNOON, EVENING AND AT BEDTIME
     Route: 048
  13. SINEMET [Suspect]
     Active Substance: CARBIDOPA\LEVODOPA
     Indication: Multiple system atrophy
     Route: 048
  14. TRAMADOL HYDROCHLORIDE [Suspect]
     Active Substance: TRAMADOL HYDROCHLORIDE
     Indication: Pain
     Route: 048
  15. ZOPICLONE [Suspect]
     Active Substance: ZOPICLONE
     Indication: Depression
     Dosage: 1 TABLET AND A HALF AT BEDTIME?DAILY DOSE: 1.5 DOSAGE FORM
     Route: 048
     Dates: start: 2023

REACTIONS (4)
  - Suicide attempt [Not Recovered/Not Resolved]
  - Toxic encephalopathy [Unknown]
  - Sinus tachycardia [Unknown]
  - Off label use [Not Recovered/Not Resolved]

NARRATIVE: CASE EVENT DATE: 20241127
